FAERS Safety Report 5766212-X (Version None)
Quarter: 2008Q2

REPORT INFORMATION
  Report Type: 
  Country: None (occurrence: None)
  Receive Date: 20080609
  Receipt Date: 20080428
  Transmission Date: 20081010
  Serious: No
  Sender: FDA-Public Use
  Company Number: 002#2#2008-00350

PATIENT
  Age: 69 Year
  Sex: Male
  Weight: 66.6788 kg

DRUGS (5)
  1. NEUPRO [Suspect]
     Indication: PARKINSON'S DISEASE
     Dosage: 8MG/24H,1 IN 1 D,TRANSDERMAL ; 6MG/24H,1 IN 1 D,TRANSDERMAL
     Route: 062
     Dates: start: 20071101, end: 20080425
  2. NEUPRO [Suspect]
     Indication: PARKINSON'S DISEASE
     Dosage: 8MG/24H,1 IN 1 D,TRANSDERMAL ; 6MG/24H,1 IN 1 D,TRANSDERMAL
     Route: 062
     Dates: start: 20080426
  3. PARCOPA [Suspect]
     Indication: PARKINSON'S DISEASE
     Dosage: 4 IN 1 D,ORAL
     Route: 048
     Dates: start: 20030101
  4. REQUIP [Concomitant]
  5. LEVODOPA [Concomitant]

REACTIONS (2)
  - OVERDOSE [None]
  - PARKINSON'S DISEASE [None]
